FAERS Safety Report 8495554-2 (Version None)
Quarter: 2012Q3

REPORT INFORMATION
  Report Type: 
  Country: None (occurrence: None)
  Receive Date: 20120709
  Receipt Date: 20120629
  Transmission Date: 20120928
  Serious: Yes (Death, Life-Threatening, Hospitalization)
  Sender: FDA-Public Use
  Company Number: JP-TEVA-2011001969

PATIENT
  Sex: Male
  Weight: 66.8 kg

DRUGS (16)
  1. RITUXIMAB [Concomitant]
     Dosage: 375 MILLIGRAM;
     Dates: start: 20110420
  2. RITUXIMAB [Concomitant]
     Dosage: 375 MILLIGRAM;
     Dates: start: 20110523
  3. BENDAMUSTINE HYDROCHLORIDE [Suspect]
     Route: 042
     Dates: start: 20110615, end: 20110616
  4. RITUXIMAB [Concomitant]
     Dosage: 375 MILLIGRAM;
     Dates: start: 20110613
  5. RITUXIMAB [Concomitant]
     Dosage: 375 MILLIGRAM;
     Dates: start: 20110808
  6. BENDAMUSTINE HYDROCHLORIDE [Suspect]
     Route: 042
     Dates: start: 20110425, end: 20110426
  7. METHYLPREDNISOLONE SODIUM SUCCINATE [Concomitant]
     Dates: start: 20110909, end: 20110911
  8. PREDNISOLONE [Concomitant]
     Dates: start: 20110912, end: 20110919
  9. BENDAMUSTINE HYDROCHLORIDE [Suspect]
     Route: 042
     Dates: start: 20110523, end: 20110524
  10. BENDAMUSTINE HYDROCHLORIDE [Suspect]
     Route: 042
     Dates: start: 20110706, end: 20110707
  11. BENDAMUSTINE HYDROCHLORIDE [Suspect]
     Route: 042
     Dates: start: 20110811, end: 20110812
  12. GABEXATE MESILATE [Concomitant]
     Dates: start: 20110917, end: 20110920
  13. BENDAMUSTINE HYDROCHLORIDE [Suspect]
     Indication: MANTLE CELL LYMPHOMA RECURRENT
     Route: 042
     Dates: start: 20110331, end: 20110401
  14. RITUXIMAB [Concomitant]
     Dosage: 375 MILLIGRAM;
     Dates: start: 20110704
  15. RABEPRAZOLE SODIUM [Concomitant]
     Dates: start: 20110909, end: 20110911
  16. LANSOPRAZOLE [Concomitant]
     Dates: start: 20110912, end: 20110913

REACTIONS (3)
  - PNEUMOCYSTIS JIROVECI PNEUMONIA [None]
  - CYTOMEGALOVIRUS INFECTION [None]
  - PYREXIA [None]
